FAERS Safety Report 10522092 (Version 2)
Quarter: 2014Q4

REPORT INFORMATION
  Report Type: Spontaneous
  Country: FR (occurrence: None)
  Receive Date: 20141014
  Receipt Date: 20141120
  Transmission Date: 20150528
  Serious: Yes (Death)
  Sender: FDA-Public Use
  Company Number: DEP_02327_2014

PATIENT
  Age: 54 Year
  Sex: Male
  Weight: 69 kg

DRUGS (2)
  1. MORPHINE [Concomitant]
     Active Substance: MORPHINE
  2. PECFENT [Suspect]
     Active Substance: FENTANYL CITRATE
     Indication: PAIN
     Dosage: 1 BOTTLE
     Route: 045
     Dates: start: 20121205, end: 20121227

REACTIONS (1)
  - Epistaxis [None]

NARRATIVE: CASE EVENT DATE: 20121227
